FAERS Safety Report 15598134 (Version 2)
Quarter: 2019Q1

REPORT INFORMATION
  Report Type: Spontaneous
  Country: CA (occurrence: CA)
  Receive Date: 20181108
  Receipt Date: 20190116
  Transmission Date: 20190417
  Serious: Yes (Other)
  Sender: FDA-Public Use
  Company Number: CA-SAOL THERAPEUTICS-2018SAO01064

PATIENT
  Sex: Male

DRUGS (4)
  1. BACLOFEN. [Suspect]
     Active Substance: BACLOFEN
     Dosage: 39.8 ?G, \DAY
     Route: 037
     Dates: start: 20180608, end: 20180620
  2. BACLOFEN. [Suspect]
     Active Substance: BACLOFEN
     Dosage: 100.07 ?G, \DAY
     Route: 037
     Dates: start: 20180604, end: 20180607
  3. BACLOFEN. [Suspect]
     Active Substance: BACLOFEN
     Dosage: 24.03 ?G, \DAY
     Route: 037
     Dates: start: 20180620
  4. BACLOFEN. [Suspect]
     Active Substance: BACLOFEN
     Dosage: 59.97 ?G, \DAY
     Route: 037
     Dates: start: 20180607, end: 20180608

REACTIONS (3)
  - Myocardial infarction [Unknown]
  - Cerebrovascular accident [Unknown]
  - Hypotonia [Unknown]

NARRATIVE: CASE EVENT DATE: 201806
